FAERS Safety Report 12290810 (Version 3)
Quarter: 2016Q4

REPORT INFORMATION
  Report Type: Spontaneous
  Country: US (occurrence: US)
  Receive Date: 20160421
  Receipt Date: 20161018
  Transmission Date: 20170207
  Serious: Yes (Death)
  Sender: FDA-Public Use
  Company Number: US-PFIZER INC-2016221364

PATIENT
  Age: 48 Year
  Sex: Female

DRUGS (3)
  1. SUTENT [Suspect]
     Active Substance: SUNITINIB MALATE
     Dosage: 50 MG, CYCLIC (TAKE 1 CAPSULE BY MOUTH EVERY DAY FOR 4 WEEKS, THEN OFF FOR 2 WEEKS)
     Route: 048
     Dates: start: 201605
  2. SUTENT [Suspect]
     Active Substance: SUNITINIB MALATE
     Indication: RENAL CELL CARCINOMA
     Dosage: 50 MG, CYCLIC (ONCE DAILY FOR 4 WEEKS ON AND THEN 2 WEEKS OFF)
     Route: 048
     Dates: start: 20160405
  3. SUTENT [Suspect]
     Active Substance: SUNITINIB MALATE
     Indication: RENAL CANCER
     Dosage: 50 MG, CYCLIC (ONCE DAILY FOR 4 WEEKS ON AND THEN 2 WEEKS OFF)
     Route: 048
     Dates: start: 20160331

REACTIONS (4)
  - Death [Fatal]
  - Migraine [Recovered/Resolved]
  - Dysgeusia [Not Recovered/Not Resolved]
  - Alopecia [Not Recovered/Not Resolved]

NARRATIVE: CASE EVENT DATE: 20160409
